FAERS Safety Report 12887288 (Version 1)
Quarter: 2016Q4

REPORT INFORMATION
  Report Type: Report from Study
  Country: US (occurrence: US)
  Receive Date: 20161026
  Receipt Date: 20161026
  Transmission Date: 20170207
  Serious: Yes (Death, Life-Threatening)
  Sender: FDA-Public Use
  Company Number: US-JAZZ-2011-US-000335

PATIENT
  Age: 37 Month
  Sex: Male
  Weight: 14.8 kg

DRUGS (1)
  1. DEFIBROTIDE (INV) [Suspect]
     Active Substance: DEFIBROTIDE SODIUM
     Indication: VENOOCCLUSIVE LIVER DISEASE
     Dosage: 340 MG, 25/MG/KG DAY
     Route: 042
     Dates: start: 20101116, end: 20110106

REACTIONS (2)
  - Sepsis [Not Recovered/Not Resolved]
  - Multiple organ dysfunction syndrome [Fatal]

NARRATIVE: CASE EVENT DATE: 20110116
